FAERS Safety Report 15692329 (Version 1)
Quarter: 2018Q4

REPORT INFORMATION
  Report Type: Other
  Country: ES (occurrence: ES)
  Receive Date: 20181205
  Receipt Date: 20181205
  Transmission Date: 20190205
  Serious: Yes (Hospitalization, Other)
  Sender: FDA-Public Use
  Company Number: ES-ALEXION PHARMACEUTICALS INC-A201815753

PATIENT
  Age: 13 Year
  Sex: Female
  Weight: 38 kg

DRUGS (15)
  1. ROCALTROL [Concomitant]
     Active Substance: CALCITRIOL
     Indication: CHRONIC KIDNEY DISEASE
     Dosage: 0.5 MG, QD
     Route: 048
     Dates: start: 201705
  2. ALOPURINOL [Concomitant]
     Active Substance: ALLOPURINOL
     Indication: CHRONIC KIDNEY DISEASE
     Dosage: 100 MG, QD
     Route: 048
     Dates: start: 201212
  3. ENTOCORD [Concomitant]
     Active Substance: BUDESONIDE
     Indication: GRAFT VERSUS HOST DISEASE IN GASTROINTESTINAL TRACT
     Dosage: 3 MG, Q12H
     Route: 054
     Dates: start: 20180116
  4. SEPTRIN [Concomitant]
     Active Substance: SULFAMETHOXAZOLE\TRIMETHOPRIM
     Indication: PROPHYLAXIS
     Dosage: 1 DF (160 MG/800 MG), QOD
     Route: 048
     Dates: start: 201607
  5. SOLIRIS [Suspect]
     Active Substance: ECULIZUMAB
     Indication: OFF LABEL USE
  6. ESPIRONOLACTONA [Concomitant]
     Active Substance: SPIRONOLACTONE
     Indication: HYPERTENSION
     Dosage: 25 MG, Q12H
     Route: 048
     Dates: start: 201710
  7. ETINILESTRADIOL [Concomitant]
     Indication: SECONDARY HYPOGONADISM
     Dosage: 1 MICROGRAM 24H
     Route: 048
     Dates: start: 20180116
  8. AMOXICILINA                        /00249602/ [Concomitant]
     Active Substance: AMOXICILLIN
     Indication: PROPHYLAXIS
     Dosage: 500 MG, Q12H
     Route: 048
     Dates: start: 201701
  9. ARANESP [Concomitant]
     Active Substance: DARBEPOETIN ALFA
     Indication: ANAEMIA
     Dosage: 75 MG, Q15
     Route: 048
     Dates: start: 20170926
  10. ACFOL [Concomitant]
     Active Substance: FOLIC ACID
     Indication: CHRONIC KIDNEY DISEASE
     Dosage: 5 MG, QW
     Route: 048
     Dates: start: 201701
  11. AZITROMICINA [Concomitant]
     Active Substance: AZITHROMYCIN DIHYDRATE
     Indication: PROPHYLAXIS
     Dosage: 250 MG, QOD
     Route: 048
     Dates: start: 201712
  12. OMEPRAZOL                          /00661201/ [Concomitant]
     Active Substance: OMEPRAZOLE
     Indication: PROPHYLAXIS
     Dosage: 20 MG, UNK
     Route: 048
     Dates: start: 201607
  13. HIDROCORTISONA                     /00028601/ [Concomitant]
     Active Substance: HYDROCORTISONE
     Indication: PROPHYLAXIS
     Dosage: 15 MG, QD
     Route: 048
     Dates: start: 201704
  14. DOXAZOSIN [Concomitant]
     Active Substance: DOXAZOSIN\DOXAZOSIN MESYLATE
     Indication: HYPERTENSION
     Dosage: 8 MG, QD
     Route: 048
     Dates: start: 201701
  15. SOLIRIS [Suspect]
     Active Substance: ECULIZUMAB
     Indication: THROMBOTIC MICROANGIOPATHY
     Dosage: 1200 MG, Q15
     Route: 042
     Dates: start: 20170523

REACTIONS (2)
  - Gastroenteritis rotavirus [Recovered/Resolved]
  - Off label use [Not Recovered/Not Resolved]

NARRATIVE: CASE EVENT DATE: 20180205
